FAERS Safety Report 6933942-3 (Version None)
Quarter: 2010Q3

REPORT INFORMATION
  Report Type: 
  Country: None (occurrence: None)
  Receive Date: 20100820
  Receipt Date: 20100810
  Transmission Date: 20110219
  Serious: Yes (Other)
  Sender: FDA-Public Use
  Company Number: US-PFIZER INC-2010100845

PATIENT
  Sex: Male

DRUGS (5)
  1. LYRICA [Suspect]
     Indication: PAIN
     Dosage: UNK
     Route: 048
     Dates: start: 20100101
  2. ZANTAC [Concomitant]
     Indication: DEPRESSION
     Dosage: 150 MG, DAILY
  3. RISPERIDONE [Concomitant]
     Indication: NERVOUS SYSTEM DISORDER
     Dosage: 2 MG, DAILY
  4. TRAMADOL [Concomitant]
     Indication: NERVOUS SYSTEM DISORDER
     Dosage: 25 MG, 4X/DAY
  5. OXYCODONE [Concomitant]
     Indication: PAIN
     Dosage: 10 MG, 3X/DAY

REACTIONS (1)
  - WEIGHT INCREASED [None]
